FAERS Safety Report 6645223-6 (Version None)
Quarter: 2010Q1

REPORT INFORMATION
  Report Type: 
  Country: None (occurrence: None)
  Receive Date: 20100322
  Receipt Date: 20100316
  Transmission Date: 20100710
  Serious: Yes (Other)
  Sender: FDA-Public Use
  Company Number: GB-GILEAD-2010-0026291

PATIENT
  Sex: Male
  Weight: 90 kg

DRUGS (2)
  1. ATRIPLA [Suspect]
     Indication: HIV INFECTION
     Route: 048
     Dates: start: 20080101
  2. VIREAD [Concomitant]
     Indication: HIV INFECTION

REACTIONS (2)
  - OSTEOPENIA [None]
  - OSTEOPOROTIC FRACTURE [None]
